FAERS Safety Report 10626571 (Version 1)
Quarter: 2014Q4

REPORT INFORMATION
  Report Type: Spontaneous
  Country: US (occurrence: US)
  Receive Date: 20141204
  Receipt Date: 20141204
  Transmission Date: 20150529
  Serious: Yes (Other)
  Sender: FDA-Public Use
  Company Number: US-GILEAD-2014-0125490

PATIENT
  Age: 41 Year
  Sex: Female

DRUGS (2)
  1. RIBAVIRIN. [Concomitant]
     Active Substance: RIBAVIRIN
  2. SOVALDI [Suspect]
     Active Substance: SOFOSBUVIR
     Indication: HEPATITIS C
     Dosage: 400 MG, QD
     Route: 048
     Dates: start: 201410

REACTIONS (6)
  - Mood altered [Unknown]
  - Nausea [Unknown]
  - Nasopharyngitis [Unknown]
  - Mental impairment [Unknown]
  - Unevaluable event [Unknown]
  - Vomiting [Unknown]
